FAERS Safety Report 7005406-2 (Version None)
Quarter: 2010Q3

REPORT INFORMATION
  Report Type: 
  Country: None (occurrence: None)
  Receive Date: 20100921
  Receipt Date: 20100913
  Transmission Date: 20110219
  Serious: Yes (Other)
  Sender: FDA-Public Use
  Company Number: US-NAPPMUNDI-USA-2010-0047004

PATIENT
  Sex: Female

DRUGS (1)
  1. OXYCONTIN [Suspect]
     Indication: PANCREATITIS
     Dosage: 80 MG, TID
     Dates: start: 20100909

REACTIONS (11)
  - ABDOMINAL PAIN UPPER [None]
  - CHEST PAIN [None]
  - CHROMATURIA [None]
  - DIARRHOEA [None]
  - HYPERTENSION [None]
  - NAUSEA [None]
  - PAIN [None]
  - PANCREATITIS [None]
  - PROTEIN URINE PRESENT [None]
  - PYREXIA [None]
  - RED BLOOD CELLS URINE POSITIVE [None]
